FAERS Safety Report 6825147-1 (Version None)
Quarter: 2010Q3

REPORT INFORMATION
  Report Type: 
  Country: None (occurrence: None)
  Receive Date: 20100708
  Receipt Date: 20061120
  Transmission Date: 20110219
  Serious: No
  Sender: FDA-Public Use
  Company Number: US-PFIZER INC-2006147477

PATIENT
  Age: 78 Year
  Sex: Female

DRUGS (7)
  1. CHANTIX [Suspect]
     Indication: SMOKING CESSATION THERAPY
     Route: 048
     Dates: start: 20061027
  2. CYMBALTA [Concomitant]
  3. NICOTINE [Concomitant]
  4. WELLBUTRIN XL [Concomitant]
  5. SEROQUEL [Concomitant]
  6. LORAZEPAM [Concomitant]
  7. DETROL LA [Concomitant]

REACTIONS (1)
  - FEELING ABNORMAL [None]
